FAERS Safety Report 7379712-6 (Version None)
Quarter: 2011Q1

REPORT INFORMATION
  Report Type: 
  Country: None (occurrence: None)
  Receive Date: 20110329
  Receipt Date: 20110322
  Transmission Date: 20110831
  Serious: Yes (Hospitalization)
  Sender: FDA-Public Use
  Company Number: DE-ABBOTT-11P-062-0713727-00

PATIENT
  Sex: Male
  Weight: 103 kg

DRUGS (4)
  1. PANTOZOL 40 [Concomitant]
     Indication: PRODUCT USED FOR UNKNOWN INDICATION
  2. HUMIRA [Suspect]
     Indication: ANKYLOSING SPONDYLITIS
     Dates: start: 20100506
  3. BELOC ZOK [Concomitant]
     Indication: PRODUCT USED FOR UNKNOWN INDICATION
     Dosage: OPD
  4. LISINOPRIL [Concomitant]
     Indication: PRODUCT USED FOR UNKNOWN INDICATION
     Dosage: OPD

REACTIONS (7)
  - GASTROINTESTINAL HYPOMOTILITY [None]
  - AORTIC ARTERIOSCLEROSIS [None]
  - PANCREATITIS ACUTE [None]
  - OCULAR ICTERUS [None]
  - ABDOMINAL PAIN UPPER [None]
  - HEPATOMEGALY [None]
  - PANCREAS LIPOMATOSIS [None]
